FAERS Safety Report 9856054 (Version 1)
Quarter: 2014Q1

REPORT INFORMATION
  Report Type: Report from Study
  Country: CA (occurrence: CA)
  Receive Date: 20140130
  Receipt Date: 20140130
  Transmission Date: 20141002
  Serious: Yes (Other)
  Sender: FDA-Public Use
  Company Number: CA-ABBVIE-14P-028-1193487-00

PATIENT
  Sex: Female

DRUGS (1)
  1. HUMIRA [Suspect]
     Indication: SARCOIDOSIS
     Route: 058
     Dates: start: 20130928

REACTIONS (2)
  - Sinus disorder [Unknown]
  - Drug ineffective [Unknown]
